FAERS Safety Report 7468965-1 (Version None)
Quarter: 2011Q2

REPORT INFORMATION
  Report Type: 
  Country: None (occurrence: None)
  Receive Date: 20110429
  Receipt Date: 20100907
  Transmission Date: 20111010
  Serious: Yes (Other)
  Sender: FDA-Public Use
  Company Number: 2010MA005161

PATIENT
  Sex: Male

DRUGS (1)
  1. METOCLOPRAMIDE [Suspect]
     Dosage: PO
     Route: 048
     Dates: start: 20070201, end: 20090901

REACTIONS (5)
  - EXTRAPYRAMIDAL DISORDER [None]
  - EMOTIONAL DISORDER [None]
  - ECONOMIC PROBLEM [None]
  - TARDIVE DYSKINESIA [None]
  - DYSKINESIA [None]
